FAERS Safety Report 5330158-1 (Version None)
Quarter: 2007Q2

REPORT INFORMATION
  Report Type: 
  Country: None (occurrence: None)
  Receive Date: 20070521
  Receipt Date: 20070507
  Transmission Date: 20071010
  Serious: Yes (Hospitalization)
  Sender: FDA-Public Use
  Company Number: ES-ELI_LILLY_AND_COMPANY-ES200705002987

PATIENT
  Age: 77 Year
  Sex: Female

DRUGS (12)
  1. FORTEO [Suspect]
     Indication: OSTEOPOROSIS
     Dosage: 20 UG, DAILY (1/D)
     Route: 058
     Dates: start: 20060101
  2. SINTROM [Concomitant]
  3. ENALAPRIL [Concomitant]
  4. CARDIL [Concomitant]
  5. SEGURIL [Concomitant]
  6. BOI K [Concomitant]
  7. PREDNISONE TAB [Concomitant]
  8. ADIRO [Concomitant]
  9. LORAZEPAM [Concomitant]
  10. CHLORTHALIDONE [Concomitant]
  11. ATENOLOL [Concomitant]
  12. CORTISONE ACETATE [Concomitant]

REACTIONS (2)
  - ABDOMINAL PAIN [None]
  - INTESTINAL OBSTRUCTION [None]
